FAERS Safety Report 8318504-8 (Version None)
Quarter: 2012Q2

REPORT INFORMATION
  Report Type: 
  Country: None (occurrence: None)
  Receive Date: 20120427
  Receipt Date: 20120419
  Transmission Date: 20120825
  Serious: Yes (Hospitalization, Disabling, Other)
  Sender: FDA-Public Use
  Company Number: US-VIIV HEALTHCARE LIMITED-A0965271A

PATIENT
  Age: 32 Year
  Sex: Female
  Weight: 44.1 kg

DRUGS (3)
  1. COMBIVIR [Suspect]
     Indication: PROPHYLAXIS
     Route: 048
  2. NORVIR [Concomitant]
  3. REYATAZ [Concomitant]
     Route: 048
     Dates: start: 20100426

REACTIONS (9)
  - GASTROINTESTINAL DISORDER [None]
  - DEHYDRATION [None]
  - ABDOMINAL PAIN [None]
  - IMPAIRED GASTRIC EMPTYING [None]
  - CHOLECYSTITIS [None]
  - VOMITING [None]
  - CONSTIPATION [None]
  - DIARRHOEA [None]
  - MALNUTRITION [None]
